FAERS Safety Report 11121273 (Version 1)
Quarter: 2015Q2

REPORT INFORMATION
  Report Type: Spontaneous
  Country: US (occurrence: None)
  Receive Date: 20150518
  Receipt Date: 20150518
  Transmission Date: 20150821
  Serious: Yes (Hospitalization, Disabling)
  Sender: FDA-Public Use
  Company Number: None

PATIENT
  Age: 58 Year
  Sex: Male
  Weight: 136.08 kg

DRUGS (4)
  1. METFORMIN [Concomitant]
     Active Substance: METFORMIN HYDROCHLORIDE
  2. CANDESARTAN [Concomitant]
     Active Substance: CANDESARTAN
  3. STATIN DRUGS [Concomitant]
     Active Substance: UNSPECIFIED INGREDIENT
  4. TRULICITY [Suspect]
     Active Substance: DULAGLUTIDE
     Indication: DIABETES MELLITUS INADEQUATE CONTROL
     Dosage: 1 INJECTION WEEKLY SUBCUTANEOUS
     Route: 058
     Dates: start: 20141230, end: 20150201

REACTIONS (2)
  - Cerebrovascular accident [None]
  - Vertebral artery thrombosis [None]

NARRATIVE: CASE EVENT DATE: 20150202
